FAERS Safety Report 25272718 (Version 1)
Quarter: 2025Q2

REPORT INFORMATION
  Report Type: Spontaneous
  Country: IL (occurrence: IL)
  Receive Date: 20250506
  Receipt Date: 20250506
  Transmission Date: 20250716
  Serious: Yes (Other)
  Sender: BAXTER
  Company Number: IL-BAXTER-2025BAX014832

PATIENT

DRUGS (4)
  1. SODIUM CHLORIDE [Suspect]
     Active Substance: SODIUM CHLORIDE
     Route: 065
     Dates: start: 20250410
  2. DEXTROSE MONOHYDRATE [Suspect]
     Active Substance: DEXTROSE MONOHYDRATE
     Route: 065
     Dates: start: 20250410
  3. CARBOPLATIN [Suspect]
     Active Substance: CARBOPLATIN
     Route: 065
     Dates: start: 20250410
  4. TAXOL [Suspect]
     Active Substance: PACLITAXEL
     Route: 065
     Dates: start: 20250410

REACTIONS (5)
  - Loss of consciousness [Unknown]
  - Musculoskeletal stiffness [Unknown]
  - Nausea [Unknown]
  - Erythema [Unknown]
  - Blood pressure increased [Unknown]
